FAERS Safety Report 26007842 (Version 1)
Quarter: 2025Q4

REPORT INFORMATION
  Report Type: Spontaneous
  Country: KR (occurrence: KR)
  Receive Date: 20251106
  Receipt Date: 20251106
  Transmission Date: 20260118
  Serious: Yes (Other)
  Sender: MYLAN
  Company Number: KR-MYLANLABS-2025M1093538

PATIENT
  Sex: Female

DRUGS (1)
  1. NEURONTIN [Suspect]
     Active Substance: GABAPENTIN
     Indication: Temporomandibular pain and dysfunction syndrome
     Dosage: 300 MILLIGRAM, QD
     Dates: start: 20220613, end: 20220615

REACTIONS (6)
  - Depressed level of consciousness [Recovered/Resolved]
  - Visual impairment [Recovered/Resolved]
  - Angioedema [Recovered/Resolved]
  - Dizziness [Recovered/Resolved]
  - Somnolence [Recovered/Resolved]
  - Off label use [Unknown]

NARRATIVE: CASE EVENT DATE: 20220613
